FAERS Safety Report 6626690-0 (Version None)
Quarter: 2010Q1

REPORT INFORMATION
  Report Type: 
  Country: None (occurrence: None)
  Receive Date: 20100308
  Receipt Date: 20100225
  Transmission Date: 20100710
  Serious: Yes (Hospitalization)
  Sender: FDA-Public Use
  Company Number: CIP10000292

PATIENT
  Age: 59 Year
  Sex: Female

DRUGS (1)
  1. ACTONEL [Suspect]
     Indication: OSTEOPOROSIS
     Dosage: 150 MG ONCE MONTHLY, ORAL
     Route: 048

REACTIONS (4)
  - CHEST DISCOMFORT [None]
  - EYE HAEMORRHAGE [None]
  - INFLUENZA LIKE ILLNESS [None]
  - INSOMNIA [None]
